FAERS Safety Report 17805519 (Version 2)
Quarter: 2020Q3

REPORT INFORMATION
  Report Type: Spontaneous
  Country: BR (occurrence: BR)
  Receive Date: 20200520
  Receipt Date: 20200907
  Transmission Date: 20201102
  Serious: Yes (Other)
  Sender: FDA-Public Use
  Company Number: BR-ROCHE-2602421

PATIENT
  Sex: Male

DRUGS (1)
  1. RIVOTRIL [Suspect]
     Active Substance: CLONAZEPAM
     Indication: PRODUCT USED FOR UNKNOWN INDICATION
     Route: 048

REACTIONS (4)
  - Diabetes mellitus [Unknown]
  - Retinal detachment [Unknown]
  - Visual impairment [Not Recovered/Not Resolved]
  - Product packaging quantity issue [Unknown]
